FAERS Safety Report 17370697 (Version 3)
Quarter: 2020Q3

REPORT INFORMATION
  Report Type: Report from Study
  Country: PK (occurrence: PK)
  Receive Date: 20200205
  Receipt Date: 20200915
  Transmission Date: 20201102
  Serious: Yes (Other)
  Sender: FDA-Public Use
  Company Number: NVSC2020PK029050

PATIENT
  Age: 75 Year
  Sex: Female

DRUGS (12)
  1. SUSTAC [Concomitant]
     Active Substance: NITROGLYCERIN
     Indication: PRODUCT USED FOR UNKNOWN INDICATION
     Dosage: UNK
     Route: 065
  2. EXELON [Suspect]
     Active Substance: RIVASTIGMINE TARTRATE
     Dosage: 4.5 MG, BID
     Route: 048
     Dates: start: 20200128, end: 20200131
  3. EXELON [Suspect]
     Active Substance: RIVASTIGMINE TARTRATE
     Dosage: 6 MG, BID
     Route: 048
     Dates: start: 20200131, end: 20200909
  4. INSULIN [Concomitant]
     Active Substance: INSULIN NOS
     Indication: PRODUCT USED FOR UNKNOWN INDICATION
     Dosage: UNK
     Route: 065
  5. EXELON [Suspect]
     Active Substance: RIVASTIGMINE TARTRATE
     Indication: DEMENTIA WITH LEWY BODIES
     Dosage: 3 MG, BID
     Route: 048
     Dates: start: 20200126
  6. EXELON [Suspect]
     Active Substance: RIVASTIGMINE TARTRATE
     Dosage: 3 MG, BID
     Route: 048
  7. EXELON [Suspect]
     Active Substance: RIVASTIGMINE TARTRATE
     Indication: DEMENTIA ALZHEIMER^S TYPE
     Dosage: 6 MG, QD (IN EVENING)
     Route: 048
     Dates: start: 20180717
  8. EXELON [Suspect]
     Active Substance: RIVASTIGMINE TARTRATE
     Dosage: 9 MG, QW (6 MG (MORNING) + 3 MG (EVENING))
     Route: 048
  9. EZIDAY [Concomitant]
     Indication: PRODUCT USED FOR UNKNOWN INDICATION
     Dosage: UNK
     Route: 065
  10. EXELON [Suspect]
     Active Substance: RIVASTIGMINE TARTRATE
     Dosage: 10.5 MG, QD (4.5 MG IN MORNING AND 6 MG IN EVENING)
     Route: 048
     Dates: start: 20200131
  11. COBALAMIN [Concomitant]
     Active Substance: COBALAMIN
     Indication: PRODUCT USED FOR UNKNOWN INDICATION
     Route: 065
  12. LOPRIN [Concomitant]
     Active Substance: ASPIRIN
     Indication: PRODUCT USED FOR UNKNOWN INDICATION
     Route: 065

REACTIONS (9)
  - Behaviour disorder [Not Recovered/Not Resolved]
  - Parkinsonism [Not Recovered/Not Resolved]
  - Altered state of consciousness [Recovered/Resolved]
  - Disorientation [Recovered/Resolved]
  - Cognitive disorder [Not Recovered/Not Resolved]
  - Delusional disorder, persecutory type [Not Recovered/Not Resolved]
  - Irritability [Recovered/Resolved]
  - Hallucination [Recovered/Resolved]
  - Memory impairment [Not Recovered/Not Resolved]

NARRATIVE: CASE EVENT DATE: 20200128
